FAERS Safety Report 23600316 (Version 2)
Quarter: 2024Q1

REPORT INFORMATION
  Report Type: Spontaneous
  Country: CA (occurrence: CA)
  Receive Date: 20240306
  Receipt Date: 20240306
  Transmission Date: 20240410
  Serious: Yes (Hospitalization, Other)
  Sender: FDA-Public Use
  Company Number: CA-AstraZeneca-2024A048932

PATIENT
  Sex: Female
  Weight: 101 kg

DRUGS (1)
  1. TRASTUZUMAB DERUXTECAN [Suspect]
     Active Substance: TRASTUZUMAB DERUXTECAN
     Indication: HER2 positive breast cancer
     Dosage: 562 MG, ONCE EVERY 3 WK
     Route: 042

REACTIONS (8)
  - Decreased appetite [Recovering/Resolving]
  - Dysuria [Recovering/Resolving]
  - Fatigue [Recovering/Resolving]
  - Neuropathy peripheral [Recovering/Resolving]
  - Paraesthesia oral [Recovering/Resolving]
  - Pulmonary thrombosis [Recovering/Resolving]
  - Weight decreased [Recovering/Resolving]
  - Off label use [Recovering/Resolving]
